FAERS Safety Report 20731968 (Version 1)
Quarter: 2022Q2

REPORT INFORMATION
  Report Type: Report from Study
  Country: IQ (occurrence: IQ)
  Receive Date: 20220420
  Receipt Date: 20220420
  Transmission Date: 20220721
  Serious: Yes (Other)
  Sender: FDA-Public Use
  Company Number: IQ-BAYER-2022A037613

PATIENT
  Age: 60 Year
  Sex: Male

DRUGS (1)
  1. NEXAVAR [Suspect]
     Active Substance: SORAFENIB
     Dosage: UNK

REACTIONS (3)
  - Skin fissures [Not Recovered/Not Resolved]
  - Skin fissures [None]
  - Decreased appetite [None]

NARRATIVE: CASE EVENT DATE: 20220301
